FAERS Safety Report 9426241 (Version 1)
Quarter: 2013Q3

REPORT INFORMATION
  Report Type: Spontaneous
  Country: US (occurrence: US)
  Receive Date: 20130730
  Receipt Date: 20130730
  Transmission Date: 20140515
  Serious: Yes (Hospitalization)
  Sender: FDA-Public Use
  Company Number: US-AMGEN-USASP2013052782

PATIENT
  Age: 57 Year
  Sex: Female

DRUGS (1)
  1. ENBREL [Suspect]
     Indication: RHEUMATOID ARTHRITIS
     Dosage: 50 MG, QWK
     Route: 065
     Dates: start: 20120430

REACTIONS (4)
  - Pulmonary embolism [Unknown]
  - Pain in extremity [Unknown]
  - Diplopia [Not Recovered/Not Resolved]
  - Vitreous floaters [Not Recovered/Not Resolved]
